FAERS Safety Report 6406135-6 (Version None)
Quarter: 2009Q4

REPORT INFORMATION
  Report Type: 
  Country: None (occurrence: None)
  Receive Date: 20091014
  Receipt Date: 20090930
  Transmission Date: 20100525
  Serious: Yes (Other)
  Sender: FDA-Public Use
  Company Number: 2009AC000085

PATIENT
  Age: 56 Year
  Sex: Female

DRUGS (33)
  1. DIGOXIN [Suspect]
     Dosage: 0.125 MG; QD; PO
     Route: 048
     Dates: start: 20030401, end: 20080721
  2. POTASSIUM CHLORIDE [Concomitant]
  3. TRIMOX [Concomitant]
  4. TEQUIN [Concomitant]
  5. KLOR-CON [Concomitant]
  6. XALATAN [Concomitant]
  7. PROPO-N-APAP [Concomitant]
  8. WARFARIN SODIUM [Concomitant]
  9. AMITRIPTYLINE HCL [Concomitant]
  10. AMOXICILLIN [Concomitant]
  11. RELION/NOVO [Concomitant]
  12. LUMIGAN [Concomitant]
  13. HUMULIN R [Concomitant]
  14. METOCLOPRAM [Concomitant]
  15. TOPROL-XL [Concomitant]
  16. COSOPT [Concomitant]
  17. GLIMEPIRIDE [Concomitant]
  18. CIPROFLOXACIN HYDROCHLORIDE [Concomitant]
  19. LISINOPRIL [Concomitant]
  20. METHAZOLAMID [Concomitant]
  21. BIMETANIDE [Concomitant]
  22. METFORMIN HCL [Concomitant]
  23. BLEPHAMIDE [Concomitant]
  24. ZOCOR [Concomitant]
  25. SIMVASTATIN [Concomitant]
  26. FERGON [Concomitant]
  27. BUMEX [Concomitant]
  28. RENAGEL [Concomitant]
  29. CENTRUM [Concomitant]
  30. AMARYL [Concomitant]
  31. ZEMPLAR [Concomitant]
  32. DARVOCET [Concomitant]
  33. TRAMADOL HCL [Concomitant]

REACTIONS (27)
  - ASTHENIA [None]
  - AZOTAEMIA [None]
  - BRONCHITIS [None]
  - CARDIOACTIVE DRUG LEVEL INCREASED [None]
  - COUGH [None]
  - DECREASED APPETITE [None]
  - DIABETES MELLITUS [None]
  - DRUG TOXICITY [None]
  - DYSPHAGIA [None]
  - DYSURIA [None]
  - ECONOMIC PROBLEM [None]
  - FALL [None]
  - FATIGUE [None]
  - GAIT DISTURBANCE [None]
  - HEADACHE [None]
  - HYPERKALAEMIA [None]
  - HYPERLIPIDAEMIA [None]
  - HYPERTENSION [None]
  - INTERNATIONAL NORMALISED RATIO DECREASED [None]
  - MENTAL STATUS CHANGES [None]
  - MULTIPLE INJURIES [None]
  - NECK PAIN [None]
  - PULMONARY CONGESTION [None]
  - RENAL FAILURE [None]
  - SNEEZING [None]
  - SURGERY [None]
  - TREMOR [None]
